FAERS Safety Report 7241840-3 (Version None)
Quarter: 2011Q1

REPORT INFORMATION
  Report Type: 
  Country: None (occurrence: None)
  Receive Date: 20110124
  Receipt Date: 20110111
  Transmission Date: 20110831
  Serious: Yes (Other)
  Sender: FDA-Public Use
  Company Number: PHHY2010JP12250

PATIENT
  Sex: Male

DRUGS (4)
  1. AMN107 [Suspect]
     Dosage: 400 MG, UNK
     Route: 048
     Dates: start: 20100219, end: 20100312
  2. AMN107 [Suspect]
     Dosage: 600 MG, UNK
     Route: 048
     Dates: start: 20091021, end: 20100218
  3. AMN107 [Suspect]
     Indication: CHRONIC MYELOID LEUKAEMIA
     Dosage: 400 MG, UNK
     Route: 048
     Dates: start: 20090909, end: 20091020
  4. POSTERISAN [Concomitant]
     Indication: HAEMORRHOIDS
     Dosage: 2 G, UNK
     Dates: start: 20090909

REACTIONS (2)
  - CORONARY ARTERY STENOSIS [None]
  - ANGINA PECTORIS [None]
